FAERS Safety Report 5246067-2 (Version None)
Quarter: 2007Q1

REPORT INFORMATION
  Report Type: 
  Country: None (occurrence: None)
  Receive Date: 20061201
  Receipt Date: 20060808
  Transmission Date: 20070707
  Serious: No
  Sender: FDA-Public Use
  Company Number: 2006PV019106

PATIENT
  Age: 49 Year
  Sex: Male
  Weight: 143.3367 kg

DRUGS (3)
  1. BYETTA [Suspect]
     Indication: DIABETES MELLITUS NON-INSULIN-DEPENDENT
     Dosage: 5 MCG;BID;SC, 5 MCG;BID;SC
     Route: 058
     Dates: start: 20060727, end: 20060728
  2. BYETTA [Suspect]
     Indication: DIABETES MELLITUS NON-INSULIN-DEPENDENT
     Dosage: 5 MCG;BID;SC, 5 MCG;BID;SC
     Route: 058
     Dates: start: 20060808
  3. GLIPIZIDE [Concomitant]

REACTIONS (7)
  - ABDOMINAL DISTENSION [None]
  - BLOOD GLUCOSE DECREASED [None]
  - COLD SWEAT [None]
  - DYSGEUSIA [None]
  - FEELING JITTERY [None]
  - NAUSEA [None]
  - TREMOR [None]
